FAERS Safety Report 22185773 (Version 1)
Quarter: 2023Q2

REPORT INFORMATION
  Report Type: Report from Study
  Country: JP (occurrence: JP)
  Receive Date: 20230407
  Receipt Date: 20230407
  Transmission Date: 20230722
  Serious: Yes (Other)
  Sender: FDA-Public Use
  Company Number: JP-UCBJ-CD202303634UCBPHAPROD

PATIENT
  Age: 13 Year
  Sex: Female
  Weight: 41.4 kg

DRUGS (7)
  1. VIMPAT [Suspect]
     Active Substance: LACOSAMIDE
     Indication: Juvenile myoclonic epilepsy
     Dosage: 25 MILLIGRAM
     Route: 048
     Dates: start: 20220201, end: 20220207
  2. VIMPAT [Suspect]
     Active Substance: LACOSAMIDE
     Indication: Generalised tonic-clonic seizure
     Dosage: 50 MILLIGRAM
     Route: 048
     Dates: start: 20220208, end: 20220222
  3. VIMPAT [Suspect]
     Active Substance: LACOSAMIDE
     Indication: Off label use
  4. MYSTAN [Concomitant]
     Active Substance: CLOBAZAM
     Indication: Juvenile myoclonic epilepsy
     Dosage: 2.5 MILLIGRAM, ONCE DAILY (QD)
     Route: 048
     Dates: start: 20211216
  5. MYSTAN [Concomitant]
     Active Substance: CLOBAZAM
     Indication: Generalised tonic-clonic seizure
  6. VALPROATE SODIUM [Concomitant]
     Active Substance: VALPROATE SODIUM
     Indication: Juvenile myoclonic epilepsy
     Dosage: 400 MILLIGRAM, ONCE DAILY (QD)
     Route: 048
     Dates: start: 20220222
  7. VALPROATE SODIUM [Concomitant]
     Active Substance: VALPROATE SODIUM
     Indication: Generalised tonic-clonic seizure

REACTIONS (4)
  - Epilepsy [Recovered/Resolved]
  - Therapeutic product effect incomplete [Unknown]
  - Off label use [Unknown]
  - Underdose [Unknown]

NARRATIVE: CASE EVENT DATE: 20220213
